FAERS Safety Report 6306665-1 (Version None)
Quarter: 2009Q3

REPORT INFORMATION
  Report Type: 
  Country: None (occurrence: None)
  Receive Date: 20090811
  Receipt Date: 20090811
  Transmission Date: 20100115
  Serious: No
  Sender: FDA-Public Use
  Company Number: None

PATIENT
  Age: 24 Year
  Sex: Female
  Weight: 58.0604 kg

DRUGS (1)
  1. MIRENA [Suspect]
     Indication: CONTRACEPTION
     Dosage: INTRA-UTERINE
     Route: 015
     Dates: start: 20080205, end: 20090810

REACTIONS (9)
  - ABDOMINAL DISTENSION [None]
  - ABDOMINAL PAIN UPPER [None]
  - BACK PAIN [None]
  - DYSPAREUNIA [None]
  - HEADACHE [None]
  - LOSS OF LIBIDO [None]
  - PREGNANCY [None]
  - VISION BLURRED [None]
  - VOMITING [None]
